FAERS Safety Report 5700398-8 (Version None)
Quarter: 2008Q2

REPORT INFORMATION
  Report Type: 
  Country: None (occurrence: None)
  Receive Date: 20080408
  Receipt Date: 20080408
  Transmission Date: 20081010
  Serious: No
  Sender: FDA-Public Use
  Company Number: None

PATIENT
  Age: 68 Year
  Sex: Female
  Weight: 62.5964 kg

DRUGS (1)
  1. ASACOL [Suspect]
     Indication: INFLAMMATORY BOWEL DISEASE
     Dosage: 3 TABS TWICE A DAY PO
     Route: 048
     Dates: start: 20060315, end: 20060405

REACTIONS (2)
  - CARDIAC DISORDER [None]
  - CHEST PAIN [None]
